FAERS Safety Report 7292293-0 (Version None)
Quarter: 2011Q1

REPORT INFORMATION
  Report Type: 
  Country: None (occurrence: None)
  Receive Date: 20110215
  Receipt Date: 20110207
  Transmission Date: 20110831
  Serious: Yes (Other)
  Sender: FDA-Public Use
  Company Number: FR-PFIZER INC-2011027887

PATIENT
  Sex: Male

DRUGS (7)
  1. COLCHICINE [Suspect]
     Dosage: 2 MG, 1X/DAY
  2. AZITHROMYCIN [Suspect]
     Dosage: UNK
  3. PRAVASTATIN [Suspect]
     Dosage: UNK
  4. CYCLOSPORINE [Suspect]
     Indication: LUNG TRANSPLANT
  5. COLCHICINE [Suspect]
     Dosage: 1 MG, 1X/DAY
  6. CYCLOSPORINE [Suspect]
     Indication: HEART TRANSPLANT
     Dosage: UNK
  7. COLCHICINE [Suspect]
     Indication: GOUTY ARTHRITIS
     Dosage: 3 MG, SINGLE

REACTIONS (3)
  - RHABDOMYOLYSIS [None]
  - MULTI-ORGAN FAILURE [None]
  - DRUG INTERACTION [None]
